FAERS Safety Report 8318863-6 (Version None)
Quarter: 2012Q2

REPORT INFORMATION
  Report Type: 
  Country: None (occurrence: None)
  Receive Date: 20120427
  Receipt Date: 20120417
  Transmission Date: 20120825
  Serious: Yes (Other)
  Sender: FDA-Public Use
  Company Number: US-DX529-2012DX000099

PATIENT
  Age: 33 Year
  Sex: Female

DRUGS (7)
  1. METFORMIN HCL [Suspect]
     Dates: start: 20120101
  2. PROMETRIUM [Concomitant]
     Indication: PRODUCT USED FOR UNKNOWN INDICATION
  3. BERINERT [Suspect]
     Indication: HEREDITARY ANGIOEDEMA
  4. THYROID TAB [Concomitant]
     Indication: PRODUCT USED FOR UNKNOWN INDICATION
  5. KALBITOR [Suspect]
     Indication: HEREDITARY ANGIOEDEMA
     Route: 058
     Dates: start: 20111229, end: 20111229
  6. CLOMID [Concomitant]
     Indication: PRODUCT USED FOR UNKNOWN INDICATION
  7. METFORMIN HCL [Suspect]
     Indication: POLYCYSTIC OVARIES
     Dates: start: 20120101, end: 20120101

REACTIONS (2)
  - PREGNANCY [None]
  - ABORTION SPONTANEOUS [None]
